FAERS Safety Report 24276840 (Version 2)
Quarter: 2024Q3

REPORT INFORMATION
  Report Type: Spontaneous
  Country: US (occurrence: US)
  Receive Date: 20240903
  Receipt Date: 20240903
  Transmission Date: 20241016
  Serious: Yes (Life-Threatening)
  Sender: ROCHE
  Company Number: US-ROCHE-10000071309

PATIENT
  Age: 75 Year
  Sex: Female

DRUGS (13)
  1. XOLAIR PFS [Suspect]
     Active Substance: OMALIZUMAB
     Indication: Asthma
     Route: 058
     Dates: start: 20240826, end: 20240826
  2. PREDNISONE [Concomitant]
     Active Substance: PREDNISONE
     Dates: start: 20240826
  3. epinephrine 0.3mg inj 2 pack [Concomitant]
     Dates: start: 20240827
  4. anastrozole 1mg tablet [Concomitant]
     Dates: start: 20240823
  5. LATANOPROST [Concomitant]
     Active Substance: LATANOPROST
     Dosage: OPHTH SOLN 2.5M
     Route: 047
     Dates: start: 20240811
  6. TRULICITY [Concomitant]
     Active Substance: DULAGLUTIDE
     Dates: start: 20240820
  7. ALBUTEROL [Concomitant]
     Active Substance: ALBUTEROL
     Dosage: 0.083%(2.5MG/3ML) 25X3M
     Dates: start: 20240812
  8. LIDOCAINE 5% [Concomitant]
     Active Substance: LIDOCAINE
     Dates: start: 20240812
  9. DORZOLAMIDE [Concomitant]
     Active Substance: DORZOLAMIDE
     Dosage: DORZOLAMIDE 2% OPHTH SOLN 10ML
     Dates: start: 20240311
  10. TRAMADOL [Concomitant]
     Active Substance: TRAMADOL\TRAMADOL HYDROCHLORIDE
     Dates: start: 20240703
  11. LOSARTAN [Concomitant]
     Active Substance: LOSARTAN\LOSARTAN POTASSIUM
     Dosage: LOSARTAN/HCTZ 100/26MG TABLETS
     Dates: start: 20240102
  12. CYCLOBENZAPRINE [Concomitant]
     Active Substance: CYCLOBENZAPRINE
     Dates: start: 20240626
  13. DORZOLAMIDE [Concomitant]
     Active Substance: DORZOLAMIDE
     Route: 047
     Dates: start: 20240811

REACTIONS (2)
  - Throat irritation [Not Recovered/Not Resolved]
  - Swollen tongue [Unknown]

NARRATIVE: CASE EVENT DATE: 20240826
